FAERS Safety Report 14921013 (Version 1)
Quarter: 2018Q2

REPORT INFORMATION
  Report Type: Spontaneous
  Country: DK (occurrence: DK)
  Receive Date: 20180521
  Receipt Date: 20180521
  Transmission Date: 20180711
  Serious: Yes (Other)
  Sender: FDA-Public Use
  Company Number: DK-LEO PHARMA-308958

PATIENT
  Age: 75 Year
  Sex: Male
  Weight: 76 kg

DRUGS (1)
  1. PICATO [Suspect]
     Active Substance: INGENOL MEBUTATE
     Indication: ACTINIC KERATOSIS
     Dosage: 1 BRUSHING DAILY FOR 3 DAYS IN PAN, STRENGTH:150 MCG/G
     Route: 003
     Dates: start: 20180301, end: 20180302

REACTIONS (5)
  - Periorbital oedema [Recovered/Resolved]
  - Periorbital inflammation [Recovered/Resolved]
  - Incorrect drug administration duration [Unknown]
  - Periorbital infection [Recovered/Resolved]
  - Erythema [Recovered/Resolved]

NARRATIVE: CASE EVENT DATE: 20180302
